FAERS Safety Report 5854355-1 (Version None)
Quarter: 2008Q3

REPORT INFORMATION
  Report Type: 
  Country: None (occurrence: None)
  Receive Date: 20080822
  Receipt Date: 20080418
  Transmission Date: 20090109
  Serious: Yes (Hospitalization, Other)
  Sender: FDA-Public Use
  Company Number: PL-WYE-H05669008

PATIENT
  Sex: Male

DRUGS (1)
  1. CONTROLOC [Suspect]
     Indication: PROPHYLAXIS AGAINST GASTROINTESTINAL ULCER
     Dosage: 40 MG EVERY 1 TOT
     Route: 042
     Dates: start: 20080223, end: 20080223

REACTIONS (3)
  - DYSPNOEA [None]
  - MALAISE [None]
  - TACHYCARDIA [None]
